FAERS Safety Report 8179871-1 (Version None)
Quarter: 2012Q1

REPORT INFORMATION
  Report Type: 
  Country: None (occurrence: None)
  Receive Date: 20120302
  Receipt Date: 20110628
  Transmission Date: 20120608
  Serious: No
  Sender: FDA-Public Use
  Company Number: US-COVIDIEN/TYCO HEALTHCARE/MALLINCKRODT-T201101366

PATIENT

DRUGS (1)
  1. SODIUM IODIDE I 123 [Suspect]
     Dosage: 200 ?CI, SINGLE
     Dates: start: 20110627, end: 20110627

REACTIONS (1)
  - DRUG INEFFECTIVE [None]
